FAERS Safety Report 19653687 (Version 2)
Quarter: 2025Q3

REPORT INFORMATION
  Report Type: Spontaneous
  Country: EU (occurrence: EU)
  Receive Date: 20210803
  Receipt Date: 20250828
  Transmission Date: 20251020
  Serious: Yes (Other)
  Sender: MYLAN
  Company Number: EU-TEVA-2021-BE-1875889

PATIENT

DRUGS (1)
  1. METOPROLOL [Suspect]
     Active Substance: METOPROLOL
     Indication: Migraine

REACTIONS (2)
  - Bradycardia [Unknown]
  - Drug ineffective [Recovered/Resolved]
